FAERS Safety Report 4868769-X (Version None)
Quarter: 2005Q4

REPORT INFORMATION
  Report Type: 
  Country: None (occurrence: None)
  Receive Date: 20051223
  Receipt Date: 20051214
  Transmission Date: 20060501
  Serious: Yes (Other)
  Sender: FDA-Public Use
  Company Number: 2005EU002803

PATIENT
  Age: 32 Year
  Sex: Male

DRUGS (1)
  1. PROGRAF [Suspect]
     Indication: LIVER TRANSPLANT
     Dosage: ORAL
     Route: 048

REACTIONS (5)
  - AZOOSPERMIA [None]
  - INFERTILITY MALE [None]
  - SPERM ANALYSIS ABNORMAL [None]
  - SPERMATOZOA PROGRESSIVE MOTILITY DECREASED [None]
  - TERATOSPERMIA [None]
